FAERS Safety Report 4875859-4 (Version None)
Quarter: 2006Q1

REPORT INFORMATION
  Report Type: 
  Country: None (occurrence: None)
  Receive Date: 20060109
  Receipt Date: 20060106
  Transmission Date: 20060701
  Serious: Yes (Death)
  Sender: FDA-Public Use
  Company Number: CH-MERCK-0601CHE00002

PATIENT
  Age: 59 Year
  Sex: Male
  Weight: 89 kg

DRUGS (5)
  1. COZAAR [Suspect]
     Indication: HYPERTENSION
     Route: 048
     Dates: start: 20050729
  2. DURAGESIC-100 [Concomitant]
     Indication: PAIN
     Route: 061
     Dates: start: 20040906
  3. SAROTEN [Concomitant]
     Indication: PAIN
     Route: 048
     Dates: start: 20040906
  4. NEURONTIN [Concomitant]
     Indication: PAIN
     Route: 048
     Dates: start: 20040921
  5. ZANIDIP [Concomitant]
     Indication: HYPERTENSION
     Route: 048
     Dates: start: 20050119

REACTIONS (1)
  - COMPLETED SUICIDE [None]
